FAERS Safety Report 12880542 (Version 1)
Quarter: 2016Q4

REPORT INFORMATION
  Report Type: Spontaneous
  Country: FR (occurrence: FR)
  Receive Date: 20161025
  Receipt Date: 20161025
  Transmission Date: 20170207
  Serious: Yes (Hospitalization, Other)
  Sender: FDA-Public Use
  Company Number: FR-VIFOR (INTERNATIONAL) INC.-VIT-2016-06617

PATIENT
  Age: 52 Year
  Sex: Female

DRUGS (16)
  1. MIRCERA [Suspect]
     Active Substance: METHOXY POLYETHYLENE GLYCOL-EPOETIN BETA
     Indication: NEPHROGENIC ANAEMIA
     Route: 058
     Dates: start: 20160819, end: 20160819
  2. PANTOPRAZOLE [Concomitant]
     Active Substance: PANTOPRAZOLE SODIUM
  3. PARACETAMOL [Concomitant]
     Active Substance: ACETAMINOPHEN
  4. FUROSEMIDE. [Concomitant]
     Active Substance: FUROSEMIDE
  5. ENDOXAN [Suspect]
     Active Substance: CYCLOPHOSPHAMIDE
     Indication: MICROSCOPIC POLYANGIITIS
     Route: 042
     Dates: start: 20160812, end: 20160812
  6. BACTRIM [Concomitant]
     Active Substance: SULFAMETHOXAZOLE\TRIMETHOPRIM
  7. MIRCERA [Suspect]
     Active Substance: METHOXY POLYETHYLENE GLYCOL-EPOETIN BETA
     Route: 058
     Dates: start: 20160810
  8. NOVONORM [Concomitant]
     Active Substance: REPAGLINIDE
  9. CALCIPARINE [Suspect]
     Active Substance: HEPARIN CALCIUM
     Indication: PRODUCT USED FOR UNKNOWN INDICATION
     Route: 058
     Dates: start: 20160810, end: 20160821
  10. MESNA. [Concomitant]
     Active Substance: MESNA
  11. HEPARIN [Suspect]
     Active Substance: HEPARIN SODIUM
     Indication: DEEP VEIN THROMBOSIS
     Route: 042
     Dates: start: 20160821, end: 20160824
  12. PRIMPERAN [Concomitant]
     Active Substance: METOCLOPRAMIDE HYDROCHLORIDE
  13. GALVUS [Concomitant]
     Active Substance: VILDAGLIPTIN
  14. ATARAX [Concomitant]
     Active Substance: HYDROXYZINE\HYDROXYZINE HYDROCHLORIDE
  15. ZOPHREN [Concomitant]
     Active Substance: ONDANSETRON
  16. COUMADINE [Concomitant]
     Active Substance: WARFARIN SODIUM

REACTIONS (2)
  - Deep vein thrombosis [Unknown]
  - Thrombocytopenia [Recovered/Resolved]

NARRATIVE: CASE EVENT DATE: 20160821
